FAERS Safety Report 7853474-8 (Version None)
Quarter: 2011Q3

REPORT INFORMATION
  Report Type: 
  Country: None (occurrence: None)
  Receive Date: 20110915
  Receipt Date: 20110207
  Transmission Date: 20111222
  Serious: Yes (Life-Threatening)
  Sender: FDA-Public Use
  Company Number: 2011027552

PATIENT
  Sex: Female
  Weight: 142 kg

DRUGS (15)
  1. ALPRAZOLAM [Concomitant]
  2. CLONIDINE [Concomitant]
  3. LISINOPRIL [Concomitant]
  4. LABETALOL HCL [Concomitant]
  5. ONDANSETRON [Concomitant]
  6. PRIVIGEN [Suspect]
     Indication: GUILLAIN-BARRE SYNDROME
     Dosage: 55 G QD, INFUSED 275ML 0.5ML/KG/HOUR INCREASED AT 30 MIN. INTERVALS BY 0.5ML/KG/HR TO MAX RATE OF 5M
     Route: 042
     Dates: start: 20110127, end: 20110131
  7. AMLODIPINE [Concomitant]
  8. GABAPENTIN [Concomitant]
  9. ENOXAPARIN SODIUM [Concomitant]
  10. PRIVIGEN [Suspect]
     Indication: GUILLAIN-BARRE SYNDROME
     Dosage: INTRAVENOUS (NOT OTHERWISE SPECIFIED)
     Route: 042
     Dates: start: 20110127, end: 20110131
  11. PROTONIX [Concomitant]
  12. PRIVIGEN [Suspect]
     Indication: GUILLAIN-BARRE SYNDROME
     Dosage: INTRAVENOUS (NOT OTHERWISE SPECIFIED)
     Route: 042
     Dates: start: 20110127, end: 20110131
  13. FUROSEMIDE [Concomitant]
  14. HYDROCHLOROTHIAZIDE [Concomitant]
  15. METOPROLOL TARTRATE [Concomitant]

REACTIONS (12)
  - GENERALISED OEDEMA [None]
  - OCULAR ICTERUS [None]
  - INTRAVASCULAR HAEMOLYSIS [None]
  - HAEMOGLOBIN DECREASED [None]
  - ANAEMIA [None]
  - RENAL FAILURE ACUTE [None]
  - PELVIC PAIN [None]
  - ANURIA [None]
  - BLOOD BILIRUBIN INCREASED [None]
  - DISSEMINATED INTRAVASCULAR COAGULATION [None]
  - JAUNDICE [None]
  - HAEMATURIA [None]
